FAERS Safety Report 5890084-6 (Version None)
Quarter: 2008Q3

REPORT INFORMATION
  Report Type: 
  Country: None (occurrence: None)
  Receive Date: 20080919
  Receipt Date: 20080915
  Transmission Date: 20090109
  Serious: Yes (Death)
  Sender: FDA-Public Use
  Company Number: CO-B.I. PHARMACEUTICALS,INC./RIDGEFIELD-2008-BP-13218CL

PATIENT
  Age: 82 Year
  Sex: Male

DRUGS (3)
  1. MIRAPEX [Suspect]
     Indication: PARKINSON'S DISEASE
     Dosage: 1MG
     Route: 048
  2. LEVODOPA [Concomitant]
     Route: 065
  3. AMANTADINA [Concomitant]
     Route: 065

REACTIONS (1)
  - CARDIAC FAILURE [None]
